FAERS Safety Report 21785276 (Version 1)
Quarter: 2022Q4

REPORT INFORMATION
  Report Type: Spontaneous
  Country: CN (occurrence: CN)
  Receive Date: 20221227
  Receipt Date: 20221227
  Transmission Date: 20230113
  Serious: No
  Sender: FDA-Public Use
  Company Number: CN-ELI_LILLY_AND_COMPANY-CN202212009058

PATIENT
  Age: 15 Year
  Sex: Female
  Weight: 28 kg

DRUGS (2)
  1. ZYPREXA [Suspect]
     Active Substance: OLANZAPINE
     Indication: Cognitive disorder
     Dosage: 2.5 MG, DAILY
     Route: 048
     Dates: start: 20220424, end: 20220424
  2. DIAZEPAM [Suspect]
     Active Substance: DIAZEPAM
     Indication: Mood swings
     Dosage: 5 MG, BID
     Route: 030
     Dates: start: 20220419, end: 20220426

REACTIONS (3)
  - White blood cell count decreased [Unknown]
  - Neutrophil count decreased [Unknown]
  - Off label use [Unknown]

NARRATIVE: CASE EVENT DATE: 20220424
